FAERS Safety Report 9641029 (Version 2)
Quarter: 2013Q4

REPORT INFORMATION
  Report Type: Spontaneous
  Country: JP (occurrence: JP)
  Receive Date: 20131023
  Receipt Date: 20131031
  Transmission Date: 20140711
  Serious: Yes (Other)
  Sender: FDA-Public Use
  Company Number: JP-PFIZER INC-2013300937

PATIENT
  Age: 50 Year
  Sex: Male

DRUGS (4)
  1. PLATOSIN [Suspect]
     Indication: OESOPHAGEAL CARCINOMA
     Dosage: 120 MG, DAILY
     Route: 042
     Dates: end: 201308
  2. PLATOSIN [Suspect]
     Dosage: 120 MG, DAILY
     Route: 042
     Dates: start: 20130911, end: 20130911
  3. 5-FU [Suspect]
     Indication: OESOPHAGEAL CARCINOMA
     Dosage: 1200 MG, DAILY
     Route: 042
     Dates: end: 201308
  4. 5-FU [Suspect]
     Dosage: 1200 MG, DAILY
     Route: 042
     Dates: start: 20130911, end: 20130915

REACTIONS (1)
  - Colitis ischaemic [Recovering/Resolving]
